FAERS Safety Report 16320881 (Version 2)
Quarter: 2019Q3

REPORT INFORMATION
  Report Type: Spontaneous
  Country: US (occurrence: US)
  Receive Date: 20190516
  Receipt Date: 20190703
  Transmission Date: 20191004
  Serious: No
  Sender: FDA-Public Use
  Company Number: US-GLAXOSMITHKLINE-US2019082520

PATIENT
  Sex: Female

DRUGS (2)
  1. BENLYSTA [Suspect]
     Active Substance: BELIMUMAB
     Indication: PRODUCT USED FOR UNKNOWN INDICATION
     Dosage: UNK
     Route: 058
     Dates: start: 2017
  2. BENLYSTA [Suspect]
     Active Substance: BELIMUMAB

REACTIONS (4)
  - Underdose [Unknown]
  - Injection site haemorrhage [Unknown]
  - Product complaint [Unknown]
  - Wrong technique in device usage process [Unknown]
